FAERS Safety Report 10202627 (Version 1)
Quarter: 2014Q2

REPORT INFORMATION
  Report Type: Spontaneous
  Country: US (occurrence: US)
  Receive Date: 20140528
  Receipt Date: 20140528
  Transmission Date: 20141212
  Serious: No
  Sender: FDA-Public Use
  Company Number: US-ASTRAZENECA-2014SE34721

PATIENT
  Sex: Female

DRUGS (3)
  1. SYMBICORT [Suspect]
     Indication: EMPHYSEMA
     Dosage: 80/4.5, 2 PUFFS TWO TIMES A DAY
     Route: 055
     Dates: start: 2014
  2. XANAX [Concomitant]
     Indication: ANXIOLYTIC THERAPY
     Dosage: 0.25 UNK
  3. ALBUTEROL INHALER [Concomitant]
     Indication: CHRONIC OBSTRUCTIVE PULMONARY DISEASE
     Dosage: UNKNOWN UNK

REACTIONS (2)
  - Weight increased [Unknown]
  - Candida infection [Not Recovered/Not Resolved]
